FAERS Safety Report 10618127 (Version 1)
Quarter: 2014Q4

REPORT INFORMATION
  Report Type: Spontaneous
  Country: PH (occurrence: PH)
  Receive Date: 20141202
  Receipt Date: 20141202
  Transmission Date: 20150529
  Serious: Yes (Other)
  Sender: FDA-Public Use
  Company Number: PH-009507513-1411PHL013259

PATIENT
  Age: 43 Year
  Sex: Male

DRUGS (1)
  1. HYZAAR [Suspect]
     Active Substance: HYDROCHLOROTHIAZIDE\LOSARTAN POTASSIUM
     Indication: HYPERTENSION
     Dosage: UNK
     Route: 048
     Dates: start: 2012

REACTIONS (3)
  - Encephalitis [Recovering/Resolving]
  - Amnesia [Recovering/Resolving]
  - Increased appetite [Recovering/Resolving]

NARRATIVE: CASE EVENT DATE: 2014
